FAERS Safety Report 7914565-6 (Version None)
Quarter: 2011Q4

REPORT INFORMATION
  Report Type: 
  Country: None (occurrence: None)
  Receive Date: 20111115
  Receipt Date: 20111102
  Transmission Date: 20120403
  Serious: Yes (Hospitalization)
  Sender: FDA-Public Use
  Company Number: PHHY2010US74114

PATIENT
  Sex: Female

DRUGS (3)
  1. EXJADE [Suspect]
     Dosage: 100 MG, UNK
     Route: 048
  2. EXJADE [Suspect]
     Dosage: 500 MG, QOD
     Route: 048
  3. EXJADE [Suspect]
     Dosage: 250 MG, QD
     Route: 048

REACTIONS (3)
  - DIARRHOEA [None]
  - DIVERTICULITIS [None]
  - APHTHOUS STOMATITIS [None]
